FAERS Safety Report 4827623-X (Version None)
Quarter: 2005Q4

REPORT INFORMATION
  Report Type: 
  Country: None (occurrence: None)
  Receive Date: 20051114
  Receipt Date: 20051104
  Transmission Date: 20060501
  Serious: Yes (Hospitalization)
  Sender: FDA-Public Use
  Company Number: PHHO2005JP17573

PATIENT
  Age: 71 Year
  Sex: Male

DRUGS (7)
  1. DIOVAN [Suspect]
     Indication: HYPERTENSION
     Dosage: 80 MG, QD
     Route: 048
     Dates: start: 20030501, end: 20040109
  2. GASTER D [Concomitant]
  3. PANALDINE [Concomitant]
  4. SIGMART [Concomitant]
  5. NORVASC [Concomitant]
  6. MEXITIL [Concomitant]
  7. EUGLUCON [Concomitant]

REACTIONS (2)
  - DYSGRAPHIA [None]
  - THROMBOTIC STROKE [None]
